FAERS Safety Report 7075809-9 (Version None)
Quarter: 2010Q4

REPORT INFORMATION
  Report Type: 
  Country: None (occurrence: None)
  Receive Date: 20101101
  Receipt Date: 20101020
  Transmission Date: 20110411
  Serious: No
  Sender: FDA-Public Use
  Company Number: US-BIOGENIDEC-2010BI023436

PATIENT
  Age: 55 Year
  Sex: Female

DRUGS (2)
  1. TYSABRI [Suspect]
     Indication: MULTIPLE SCLEROSIS
     Route: 042
     Dates: start: 20070529, end: 20100115
  2. TYSABRI [Suspect]
     Route: 042
     Dates: start: 20100503

REACTIONS (4)
  - FALL [None]
  - GAIT DISTURBANCE [None]
  - HEADACHE [None]
  - SINUSITIS [None]
